FAERS Safety Report 8801955 (Version 1)
Quarter: 2012Q4

REPORT INFORMATION
  Report Type: 
  Country: US (occurrence: US)
  Receive Date: 20120921
  Receipt Date: 20120921
  Transmission Date: 20130627
  Serious: Yes (Other)
  Sender: FDA-Public Use
  Company Number: US-ASTRAZENECA-2012SE71669

PATIENT
  Age: 54 Year
  Sex: Female
  Weight: 79.4 kg

DRUGS (8)
  1. NEXIUM [Suspect]
     Indication: HELICOBACTER INFECTION
     Route: 048
     Dates: start: 2002
  2. NEXIUM [Suspect]
     Indication: GASTROOESOPHAGEAL REFLUX DISEASE
     Route: 048
     Dates: start: 2002
  3. NEXIUM [Suspect]
     Indication: HELICOBACTER INFECTION
     Route: 048
  4. NEXIUM [Suspect]
     Indication: GASTROOESOPHAGEAL REFLUX DISEASE
     Route: 048
  5. SINGULAR [Concomitant]
     Dates: start: 2002
  6. ADVAIR [Concomitant]
     Indication: ASTHMA
     Dosage: 52/50 BID
     Route: 055
     Dates: start: 2002
  7. DIFLUCAN [Concomitant]
     Indication: ANTIFUNGAL TREATMENT
     Route: 048
     Dates: start: 200912, end: 201006
  8. DIFLUCAN [Concomitant]
     Indication: ANTIFUNGAL TREATMENT
     Route: 048
     Dates: start: 201209

REACTIONS (4)
  - Neoplasm [Unknown]
  - Coccidioidomycosis [Unknown]
  - Osteoarthritis [Unknown]
  - Visual impairment [Unknown]
